FAERS Safety Report 6520254-5 (Version None)
Quarter: 2009Q4

REPORT INFORMATION
  Report Type: 
  Country: None (occurrence: None)
  Receive Date: 20091229
  Receipt Date: 20091214
  Transmission Date: 20100525
  Serious: No
  Sender: FDA-Public Use
  Company Number: US-B.I. PHARMACEUTICALS,INC./RIDGEFIELD-2009-BP-14480BP

PATIENT
  Sex: Male

DRUGS (4)
  1. SPIRIVA [Suspect]
     Indication: BRONCHITIS CHRONIC
     Route: 055
     Dates: start: 20090601
  2. METFORMIN [Concomitant]
     Indication: DIABETES MELLITUS
  3. TERAZOSIN HCL [Concomitant]
     Indication: PROSTATOMEGALY
  4. TERAZOSIN HCL [Concomitant]
     Indication: HYPERTENSION

REACTIONS (1)
  - GLAUCOMA [None]
